FAERS Safety Report 6276400-4 (Version None)
Quarter: 2009Q3

REPORT INFORMATION
  Report Type: 
  Country: None (occurrence: None)
  Receive Date: 20090717
  Receipt Date: 20090717
  Transmission Date: 20100115
  Serious: Yes (Other)
  Sender: FDA-Public Use
  Company Number: None

PATIENT
  Age: 40 Year
  Sex: Male
  Weight: 58.9676 kg

DRUGS (2)
  1. HUMIRA [Suspect]
     Indication: ARTHRITIS
     Dosage: SINGLE PREFILLED PEN 40 MG TWICE A MONTH SQ
     Dates: start: 20081201, end: 20090717
  2. HUMIRA [Suspect]
     Indication: CROHN'S DISEASE
     Dosage: SINGLE PREFILLED PEN 40 MG TWICE A MONTH SQ
     Dates: start: 20081201, end: 20090717

REACTIONS (2)
  - BREAST MASS [None]
  - BREAST PAIN [None]
